FAERS Safety Report 4522719-4 (Version None)
Quarter: 2004Q4

REPORT INFORMATION
  Report Type: 
  Country: None (occurrence: None)
  Receive Date: 20041207
  Receipt Date: 20041124
  Transmission Date: 20050328
  Serious: Yes (Hospitalization)
  Sender: FDA-Public Use
  Company Number: JP_041004712

PATIENT
  Age: 80 Year
  Sex: Female
  Weight: 46 kg

DRUGS (10)
  1. EVISTA [Suspect]
     Indication: OSTEOPOROSIS POSTMENOPAUSAL
     Dosage: 60 MG/1 DAY
     Dates: start: 20040922, end: 20040927
  2. ROCORNAL (TRAPIDIL) [Concomitant]
  3. SELBEX (TEPRENONE) [Concomitant]
  4. ROHIPNOL (FLUNITRAZEPAM EG) [Concomitant]
  5. PREDNISOLONE [Concomitant]
  6. GASMOTIN (MOSAPRIDE CITRATE) [Concomitant]
  7. MAGNESIUM OXIDE [Concomitant]
  8. PANTOSIN (PANTETHINE) [Concomitant]
  9. ZOLPIDEM TARTRATE [Concomitant]
  10. BONALON (ALENDRONIC ACID) [Concomitant]

REACTIONS (1)
  - PLATELET COUNT DECREASED [None]
